FAERS Safety Report 20773142 (Version 1)
Quarter: 2022Q2

REPORT INFORMATION
  Report Type: Spontaneous
  Country: US (occurrence: None)
  Receive Date: 20220429
  Receipt Date: 20220429
  Transmission Date: 20220721
  Serious: Yes (Hospitalization)
  Sender: FDA-Public Use
  Company Number: None

PATIENT
  Age: 68 Year
  Sex: Female
  Weight: 78 kg

DRUGS (13)
  1. BEBTELOVIMAB [Suspect]
     Active Substance: BEBTELOVIMAB
     Indication: COVID-19
     Dosage: OTHER ROUTE : IV PUSH;?
     Route: 050
     Dates: start: 20220422, end: 20220422
  2. CEFTRIAXONE [Concomitant]
     Active Substance: CEFTRIAXONE
     Dates: start: 20220428
  3. CODEINE-GUAIFENESIN [Concomitant]
     Active Substance: CODEINE PHOSPHATE\GUAIFENESIN
     Dates: start: 20220426
  4. CYCLOBENZAPRINE [Concomitant]
     Active Substance: CYCLOBENZAPRINE
     Dates: start: 20220429
  5. DIPHENHYDRAMINE [Concomitant]
     Active Substance: DIPHENHYDRAMINE
     Dates: start: 20220424
  6. FENTANYL [Concomitant]
     Active Substance: FENTANYL
     Dates: start: 20220428
  7. HEPARIN [Concomitant]
     Active Substance: HEPARIN SODIUM
     Dates: start: 20220429
  8. HYDROMORPHONE [Concomitant]
     Active Substance: HYDROMORPHONE
     Dates: start: 20220424
  9. KETOROLAC [Concomitant]
     Active Substance: KETOROLAC TROMETHAMINE
     Dates: start: 20220422
  10. LORAZEPAM [Concomitant]
     Active Substance: LORAZEPAM
     Dates: start: 20220429
  11. METOCLOPRAMIDE [Concomitant]
     Active Substance: METOCLOPRAMIDE
     Dates: start: 20220424
  12. ONDANSETRON [Concomitant]
     Active Substance: ONDANSETRON
     Dates: start: 20220422
  13. POTASSIUM CHLORIDE [Concomitant]
     Active Substance: POTASSIUM CHLORIDE
     Dates: start: 20220426

REACTIONS (18)
  - COVID-19 [None]
  - Hypophagia [None]
  - Chest pain [None]
  - Hypokalaemia [None]
  - Colitis [None]
  - Sepsis [None]
  - Lung disorder [None]
  - Pulmonary embolism [None]
  - Hydronephrosis [None]
  - Haematemesis [None]
  - Syncope [None]
  - Blood pressure increased [None]
  - Urosepsis [None]
  - Pyelonephritis [None]
  - Tachycardia [None]
  - Tachypnoea [None]
  - Fall [None]
  - Tooth fracture [None]

NARRATIVE: CASE EVENT DATE: 20220429
